FAERS Safety Report 16283626 (Version 1)
Quarter: 2019Q2

REPORT INFORMATION
  Report Type: Report from Study
  Country: US (occurrence: US)
  Receive Date: 20190507
  Receipt Date: 20190507
  Transmission Date: 20190711
  Serious: Yes (Hospitalization)
  Sender: FDA-Public Use
  Company Number: US-ACTELION-A-US2018-179388

PATIENT
  Sex: Female
  Weight: 70.3 kg

DRUGS (7)
  1. DILTIAZEM. [Concomitant]
     Active Substance: DILTIAZEM
  2. OPSUMIT [Suspect]
     Active Substance: MACITENTAN
     Indication: PULMONARY ARTERIAL HYPERTENSION
     Dosage: 10 MG, QD
     Route: 048
  3. UPTRAVI [Suspect]
     Active Substance: SELEXIPAG
     Indication: PULMONARY ARTERIAL HYPERTENSION
     Dosage: UNK
     Route: 048
  4. UPTRAVI [Suspect]
     Active Substance: SELEXIPAG
     Dosage: 800 MCG, BID
     Route: 048
  5. UPTRAVI [Suspect]
     Active Substance: SELEXIPAG
     Dosage: 600 MCG, BID
     Route: 048
  6. UPTRAVI [Suspect]
     Active Substance: SELEXIPAG
     Dosage: 400 MCG, BID
     Route: 048
  7. ELIQUIS [Concomitant]
     Active Substance: APIXABAN

REACTIONS (21)
  - Headache [Unknown]
  - Peripheral swelling [Recovering/Resolving]
  - Cholelithiasis [Unknown]
  - Mouth swelling [Unknown]
  - Upper limb fracture [Unknown]
  - Asthenia [Unknown]
  - Malaise [Unknown]
  - Pain in extremity [Unknown]
  - Sleep disorder [Unknown]
  - Nausea [Unknown]
  - Dizziness [Recovered/Resolved]
  - Dyspnoea [Unknown]
  - Myalgia [Unknown]
  - Vascular pain [Unknown]
  - Retching [Unknown]
  - Diarrhoea [Unknown]
  - White blood cell count increased [Unknown]
  - Arthralgia [Unknown]
  - Inflammation [Unknown]
  - Unevaluable event [Unknown]
  - Swollen tongue [Unknown]
